FAERS Safety Report 9455870 (Version 2)
Quarter: 2013Q3

REPORT INFORMATION
  Report Type: Report from Study
  Country: US (occurrence: US)
  Receive Date: 20130813
  Receipt Date: 20130820
  Transmission Date: 20140515
  Serious: Yes (Death, Hospitalization)
  Sender: FDA-Public Use
  Company Number: US-MERCK-1206USA01299

PATIENT
  Age: 72 Year
  Sex: Male
  Weight: 70.76 kg

DRUGS (6)
  1. VORINOSTAT [Suspect]
     Indication: MYELODYSPLASTIC SYNDROME
     Dosage: ON DAYS 3 THROUGH 16 FOR EACH 28 DAYS CYCLE
     Route: 048
     Dates: start: 20110707, end: 20110720
  2. VORINOSTAT [Suspect]
     Dosage: ON DAYS 3 THROUGH 16 FOR EACH 28 DAYS CYCLE
     Route: 048
     Dates: start: 20120523, end: 20120605
  3. VORINOSTAT [Suspect]
     Dosage: ON DAYS 3 THROUGH 16 FOR EACH 28 DAYS CYCLE
     Route: 048
     Dates: start: 20130629
  4. AZACITIDINE [Suspect]
     Indication: MYELODYSPLASTIC SYNDROME
     Dosage: ON DAYS 1 THROUGH 7 FOR EACH 28 DAYS CYCLE
     Route: 058
     Dates: start: 20110705, end: 20110711
  5. AZACITIDINE [Suspect]
     Dosage: ON DAYS 1 THROUGH 7 FOR EACH 28 DAYS CYCLE
     Route: 058
     Dates: start: 20120521, end: 20120527
  6. AZACITIDINE [Suspect]
     Dosage: ON DAYS 1 THROUGH 7 FOR EACH 28 DAYS CYCLE
     Route: 058
     Dates: start: 20130627, end: 20130703

REACTIONS (2)
  - Pneumonia [Recovering/Resolving]
  - Pneumonitis [Fatal]
